FAERS Safety Report 7275676-4 (Version None)
Quarter: 2011Q1

REPORT INFORMATION
  Report Type: 
  Country: None (occurrence: None)
  Receive Date: 20110204
  Receipt Date: 20110126
  Transmission Date: 20110831
  Serious: Yes (Other)
  Sender: FDA-Public Use
  Company Number: US-JNJFOC-20110107479

PATIENT
  Sex: Female
  Weight: 66.23 kg

DRUGS (5)
  1. PREDNISONE [Concomitant]
     Indication: INFLAMMATION
     Route: 048
  2. ENTOCORT EC [Concomitant]
     Indication: INFLAMMATION
     Route: 048
  3. LORCET-HD [Concomitant]
     Indication: PAIN
     Route: 048
  4. REMICADE [Suspect]
     Indication: COLITIS ULCERATIVE
     Route: 042
  5. IMURAN [Concomitant]
     Indication: INFLAMMATION
     Route: 048

REACTIONS (4)
  - PYREXIA [None]
  - ABNORMAL LOSS OF WEIGHT [None]
  - AMENORRHOEA [None]
  - DECREASED APPETITE [None]
